FAERS Safety Report 9399816 (Version 1)
Quarter: 2013Q3

REPORT INFORMATION
  Report Type: Spontaneous
  Country: AU (occurrence: AU)
  Receive Date: 20130715
  Receipt Date: 20130715
  Transmission Date: 20140515
  Serious: Yes (Other)
  Sender: FDA-Public Use
  Company Number: PHHY2013AU073571

PATIENT
  Sex: Female

DRUGS (2)
  1. AFINITOR [Suspect]
  2. ZOMETA [Suspect]

REACTIONS (1)
  - Exposed bone in jaw [Unknown]
